FAERS Safety Report 17892445 (Version 1)
Quarter: 2020Q2

REPORT INFORMATION
  Report Type: Spontaneous
  Country: US (occurrence: US)
  Receive Date: 20200613
  Receipt Date: 20200613
  Transmission Date: 20200714
  Serious: No
  Sender: FDA-Public Use
  Company Number: US-DRREDDYS-USA/USA/20/0123852

PATIENT
  Age: 68 Year
  Sex: Female
  Weight: 30.15 kg

DRUGS (1)
  1. NICOTINE. [Suspect]
     Active Substance: NICOTINE
     Indication: TOBACCO USER
     Route: 062
     Dates: start: 202005, end: 20200603

REACTIONS (3)
  - Rash [Unknown]
  - Skin irritation [Unknown]
  - Erythema [Unknown]
